FAERS Safety Report 6875784-3 (Version None)
Quarter: 2010Q3

REPORT INFORMATION
  Report Type: 
  Country: None (occurrence: None)
  Receive Date: 20100727
  Receipt Date: 20071004
  Transmission Date: 20110219
  Serious: Yes (Death, Hospitalization)
  Sender: FDA-Public Use
  Company Number: US-PFIZER INC-2006150640

PATIENT
  Sex: Female

DRUGS (4)
  1. CELEBREX [Suspect]
     Indication: ARTHRALGIA
     Route: 048
     Dates: start: 20000125, end: 20011227
  2. VIOXX [Suspect]
     Indication: ARTHRALGIA
     Dosage: 25MG TWICE + 50MG ONCE PER DAY
     Route: 048
     Dates: start: 20010725, end: 20011227
  3. PROPOXYPHENE NAPSYLATE W/ ACETAMINOPHEN [Concomitant]
     Dates: start: 19980723, end: 20011227
  4. ENALAPRIL MALEATE [Concomitant]
     Indication: HYPERTENSION
     Dates: start: 20001203, end: 20011227

REACTIONS (1)
  - CEREBROVASCULAR ACCIDENT [None]
